FAERS Safety Report 21042757 (Version 13)
Quarter: 2023Q1

REPORT INFORMATION
  Report Type: Report from Study
  Country: CL (occurrence: None)
  Receive Date: 20220705
  Receipt Date: 20230222
  Transmission Date: 20230417
  Serious: Yes (Other)
  Sender: FDA-Public Use
  Company Number: CL-Eisai Medical Research-EC-2022-118205

PATIENT
  Age: 60 Year
  Sex: Female
  Weight: 64.5 kg

DRUGS (11)
  1. LENVATINIB [Suspect]
     Active Substance: LENVATINIB
     Indication: Clear cell renal cell carcinoma
     Dosage: STARTING AT 20 MG, FLUCTUATED DOSAGE
     Route: 048
     Dates: start: 20220421, end: 20220704
  2. LENVATINIB [Suspect]
     Active Substance: LENVATINIB
     Dosage: STARTING AT 14 MG, FLUCTUATED DOSAGE
     Route: 048
     Dates: start: 20220705
  3. PEMBROLIZUMAB [Suspect]
     Active Substance: PEMBROLIZUMAB
     Indication: Clear cell renal cell carcinoma
     Route: 041
     Dates: start: 20220421, end: 20220602
  4. PEMBROLIZUMAB [Suspect]
     Active Substance: PEMBROLIZUMAB
     Route: 041
     Dates: start: 20220714
  5. BELZUTIFAN [Suspect]
     Active Substance: BELZUTIFAN
     Indication: Clear cell renal cell carcinoma
     Route: 048
     Dates: start: 20220421, end: 20220701
  6. BELZUTIFAN [Suspect]
     Active Substance: BELZUTIFAN
     Route: 048
     Dates: start: 20220703
  7. LOSARTAN [Concomitant]
     Active Substance: LOSARTAN
     Dates: start: 20220504
  8. CELECOXIB [Concomitant]
     Active Substance: CELECOXIB
     Dates: start: 20220504, end: 20220712
  9. UREA [Concomitant]
     Active Substance: UREA
     Dates: start: 20220504
  10. PREDNISONE [Concomitant]
     Active Substance: PREDNISONE
     Dates: start: 20220527
  11. LEVOTHYROXINE SODIUM [Concomitant]
     Active Substance: LEVOTHYROXINE SODIUM
     Dates: start: 20220512, end: 20220804

REACTIONS (2)
  - Neutrophil count decreased [Recovered/Resolved]
  - Anaemia [Recovered/Resolved]

NARRATIVE: CASE EVENT DATE: 20220623
